FAERS Safety Report 7574656-9 (Version None)
Quarter: 2011Q2

REPORT INFORMATION
  Report Type: 
  Country: None (occurrence: None)
  Receive Date: 20110627
  Receipt Date: 20110615
  Transmission Date: 20111010
  Serious: Yes (Life-Threatening, Other)
  Sender: FDA-Public Use
  Company Number: JP-AMGEN-JPNSP2011028584

PATIENT
  Age: 61 Year
  Sex: Female
  Weight: 60 kg

DRUGS (5)
  1. ROMIPLATE [Suspect]
     Indication: IDIOPATHIC THROMBOCYTOPENIC PURPURA
     Route: 065
     Dates: start: 20110510, end: 20110517
  2. ANABOLIC STEROIDS AND PREPARATIONS [Concomitant]
     Route: 048
  3. ANABOLIC STEROIDS AND PREPARATIONS [Concomitant]
     Route: 048
  4. ADRENAL HORMONE PREPARATIONS [Concomitant]
     Route: 048
  5. ADRENAL HORMONE PREPARATIONS [Concomitant]
     Route: 048

REACTIONS (1)
  - CEREBRAL HAEMORRHAGE [None]
